FAERS Safety Report 25467003 (Version 2)
Quarter: 2025Q2

REPORT INFORMATION
  Report Type: Spontaneous
  Country: US (occurrence: US)
  Receive Date: 20250623
  Receipt Date: 20250623
  Transmission Date: 20250716
  Serious: Yes (Hospitalization, Other)
  Sender: STRIDES
  Company Number: US-STRIDES ARCOLAB LIMITED-2025SP004987

PATIENT
  Age: 15 Year
  Sex: Male

DRUGS (14)
  1. AMITRIPTYLINE [Suspect]
     Active Substance: AMITRIPTYLINE
     Indication: Status dystonicus
     Route: 065
  2. CYCLOBENZAPRINE [Suspect]
     Active Substance: CYCLOBENZAPRINE
     Indication: Status dystonicus
     Route: 065
  3. BACLOFEN [Suspect]
     Active Substance: BACLOFEN
     Indication: Status dystonicus
     Route: 065
  4. BACLOFEN [Suspect]
     Active Substance: BACLOFEN
     Route: 065
  5. GABAPENTIN [Suspect]
     Active Substance: GABAPENTIN
     Indication: Status dystonicus
     Route: 065
  6. MORPHINE [Suspect]
     Active Substance: MORPHINE
     Indication: Status dystonicus
     Route: 065
  7. KETOROLAC [Suspect]
     Active Substance: KETOROLAC TROMETHAMINE
     Indication: Status dystonicus
     Route: 065
  8. KETAMINE [Suspect]
     Active Substance: KETAMINE
     Indication: Status dystonicus
     Route: 065
  9. DANTROLENE [Suspect]
     Active Substance: DANTROLENE
     Indication: Status dystonicus
     Route: 065
  10. PRUCALOPRIDE [Suspect]
     Active Substance: PRUCALOPRIDE
     Indication: Status dystonicus
     Route: 065
  11. HYDROMORPHONE [Suspect]
     Active Substance: HYDROMORPHONE
     Indication: Status dystonicus
     Route: 065
  12. METHADONE [Suspect]
     Active Substance: METHADONE HYDROCHLORIDE
     Indication: Status dystonicus
     Route: 065
  13. HYOSCYAMINE [Suspect]
     Active Substance: HYOSCYAMINE
     Indication: Status dystonicus
     Route: 065
  14. DEXMEDETOMIDINE [Suspect]
     Active Substance: DEXMEDETOMIDINE
     Indication: Status dystonicus
     Route: 065

REACTIONS (2)
  - Drug ineffective for unapproved indication [Unknown]
  - Off label use [Unknown]
